FAERS Safety Report 4815895-7 (Version None)
Quarter: 2005Q4

REPORT INFORMATION
  Report Type: 
  Country: None (occurrence: None)
  Receive Date: 20051026
  Receipt Date: 20051013
  Transmission Date: 20060501
  Serious: Yes (Hospitalization, Disabling, Other)
  Sender: FDA-Public Use
  Company Number: 2005142347

PATIENT
  Sex: Male

DRUGS (2)
  1. BEXTRA [Suspect]
     Indication: JOINT INJURY
     Dosage: 60 MG (20 MG 3 IN 1 D)
     Dates: start: 20030101
  2. NAPROXEN [Concomitant]

REACTIONS (12)
  - ALOPECIA [None]
  - BLOOD CHOLESTEROL ABNORMAL [None]
  - BLOOD PRESSURE INCREASED [None]
  - CARDIAC FAILURE CONGESTIVE [None]
  - DYSSTASIA [None]
  - MALAISE [None]
  - OEDEMA PERIPHERAL [None]
  - POLYCYTHAEMIA [None]
  - PULMONARY THROMBOSIS [None]
  - SKIN DISCOLOURATION [None]
  - SLEEP APNOEA SYNDROME [None]
  - WEIGHT INCREASED [None]
